FAERS Safety Report 5574647-3 (Version None)
Quarter: 2007Q4

REPORT INFORMATION
  Report Type: 
  Country: None (occurrence: None)
  Receive Date: 20071130
  Receipt Date: 20070820
  Transmission Date: 20080405
  Serious: No
  Sender: FDA-Public Use
  Company Number: US200708005038

PATIENT
  Age: 54 Year
  Sex: Female

DRUGS (4)
  1. BYETTA [Suspect]
     Indication: TYPE 2 DIABETES MELLITUS
     Dosage: 5 UG, 2/D, SUBCUTANEOUS
     Route: 058
     Dates: start: 20050701, end: 20050101
  2. BYETTA [Suspect]
     Dosage: 10 UG, 2/D, SUBCUTANEOUS : 20 UG, SUBCUTANEOUS
     Route: 058
     Dates: start: 20070820, end: 20070820
  3. BYETTA [Suspect]
     Dosage: 10 UG, 2/D, SUBCUTANEOUS : 20 UG, SUBCUTANEOUS
     Route: 058
     Dates: start: 20050101
  4. METFORMIN HCL [Concomitant]

REACTIONS (5)
  - ABDOMINAL PAIN [None]
  - ACCIDENTAL OVERDOSE [None]
  - DIVERTICULITIS [None]
  - DRUG ADMINISTRATION ERROR [None]
  - MALAISE [None]
